FAERS Safety Report 23700376 (Version 1)
Quarter: 2024Q2

REPORT INFORMATION
  Report Type: Spontaneous
  Country: US (occurrence: US)
  Receive Date: 20240403
  Receipt Date: 20240403
  Transmission Date: 20240717
  Serious: No
  Sender: FDA-Public Use
  Company Number: US-PADAGIS-2024PAD00480

PATIENT

DRUGS (1)
  1. BACITRACIN [Suspect]
     Active Substance: BACITRACIN
     Indication: Product used for unknown indication
     Dosage: UNK, UNK
     Route: 065

REACTIONS (1)
  - Hypersensitivity [Unknown]
